FAERS Safety Report 19427386 (Version 4)
Quarter: 2022Q1

REPORT INFORMATION
  Report Type: Report from Study
  Country: CA (occurrence: CA)
  Receive Date: 20210617
  Receipt Date: 20211104
  Transmission Date: 20220423
  Serious: Yes (Hospitalization, Other)
  Sender: FDA-Public Use
  Company Number: CA-BRISTOL-MYERS SQUIBB COMPANY-BMS-2021-056771

PATIENT
  Age: 18 Year
  Sex: Male

DRUGS (12)
  1. NIVOLUMAB [Suspect]
     Active Substance: NIVOLUMAB
     Indication: Mesothelioma
     Dosage: 175 MILLIGRAM
     Route: 042
     Dates: start: 20210607
  2. NIVOLUMAB [Suspect]
     Active Substance: NIVOLUMAB
     Indication: Mucoepidermoid carcinoma
     Dosage: 175 MILLIGRAM
     Route: 042
     Dates: start: 20210702
  3. NIVOLUMAB [Suspect]
     Active Substance: NIVOLUMAB
     Dosage: 175 MILLIGRAM
     Route: 042
     Dates: start: 20210729
  4. NIVOLUMAB [Suspect]
     Active Substance: NIVOLUMAB
     Dosage: 195 MILLIGRAM
     Route: 042
     Dates: start: 20210819
  5. NIVOLUMAB [Suspect]
     Active Substance: NIVOLUMAB
     Dosage: 1 MILLIGRAM/KILOGRAM, Q3WK
     Route: 042
     Dates: end: 20210902
  6. YERVOY [Suspect]
     Active Substance: IPILIMUMAB
     Indication: Mesothelioma
     Dosage: 59 MILLIGRAM
     Route: 042
     Dates: start: 20210607
  7. YERVOY [Suspect]
     Active Substance: IPILIMUMAB
     Indication: Mucoepidermoid carcinoma
     Dosage: 59 MILLIGRAM
     Route: 042
     Dates: start: 20210702
  8. YERVOY [Suspect]
     Active Substance: IPILIMUMAB
     Dosage: 59 MILLIGRAM
     Route: 042
     Dates: start: 20210729
  9. YERVOY [Suspect]
     Active Substance: IPILIMUMAB
     Dosage: 59 MILLIGRAM
     Route: 042
     Dates: start: 20210819
  10. YERVOY [Suspect]
     Active Substance: IPILIMUMAB
     Dosage: 3 MILLIGRAM/KILOGRAM, Q3WK
     Route: 042
     Dates: end: 20210902
  11. AMIODARONE [Concomitant]
     Active Substance: AMIODARONE
     Indication: Arrhythmia
     Dosage: 100 IN MORNING AND 200 MG NIGHT
     Route: 048
     Dates: start: 20180822
  12. DABIGATRAN [Concomitant]
     Active Substance: DABIGATRAN
     Indication: Atrial fibrillation
     Dosage: 110 MILLIGRAM, BID
     Route: 048
     Dates: start: 20180823

REACTIONS (5)
  - Generalised tonic-clonic seizure [Recovered/Resolved]
  - Malignant neoplasm progression [Unknown]
  - Encephalitis [Unknown]
  - Anaemia [Unknown]
  - Intentional product use issue [Unknown]

NARRATIVE: CASE EVENT DATE: 20210608
